FAERS Safety Report 9886800 (Version 1)
Quarter: 2014Q1

REPORT INFORMATION
  Report Type: Report from Study
  Country: PL (occurrence: PL)
  Receive Date: 20140210
  Receipt Date: 20140210
  Transmission Date: 20141002
  Serious: Yes (Other)
  Sender: FDA-Public Use
  Company Number: PL-BAXTER-2014BAX005539

PATIENT
  Sex: Female

DRUGS (4)
  1. SEVOFLURANE BAXTER [Suspect]
     Indication: GENERAL ANAESTHESIA
     Dosage: 1-2 VOL%
  2. THIOPENTONE SODIUM [Suspect]
     Indication: ANAESTHESIA
     Dosage: 5 MG/KG-1
     Route: 065
  3. FENTANYL [Suspect]
     Indication: ANAESTHESIA
     Dosage: 3-5 UG/KG-1
     Route: 065
  4. CISATRACURIUM [Suspect]
     Indication: ANAESTHESIA
     Dosage: 0.1MG/KG-1
     Route: 065

REACTIONS (1)
  - Unwanted awareness during anaesthesia [Unknown]
